FAERS Safety Report 5718778-3 (Version None)
Quarter: 2008Q2

REPORT INFORMATION
  Report Type: 
  Country: None (occurrence: None)
  Receive Date: 20080423
  Receipt Date: 20080417
  Transmission Date: 20081010
  Serious: Yes (Hospitalization)
  Sender: FDA-Public Use
  Company Number: 2008BI010327

PATIENT
  Age: 31 Year
  Sex: Female
  Weight: 57 kg

DRUGS (4)
  1. AVONEX [Suspect]
     Indication: MULTIPLE SCLEROSIS
     Dosage: 30 UG; QW; IM
     Route: 030
     Dates: start: 20060101
  2. ORAL CONTRACEPTIVE PILL [Concomitant]
  3. TRAMADOL HCL [Concomitant]
  4. AMITRIPTLINE HCL [Concomitant]

REACTIONS (1)
  - BACK DISORDER [None]
